FAERS Safety Report 8827333 (Version 4)
Quarter: 2015Q1

REPORT INFORMATION
  Report Type: Spontaneous
  Country: US (occurrence: US)
  Receive Date: 20121005
  Receipt Date: 20150225
  Transmission Date: 20150721
  Serious: Yes (Other)
  Sender: FDA-Public Use
  Company Number: US-ASTRAZENECA-2012SE76022

PATIENT
  Age: 54 Year
  Sex: Female
  Weight: 101.2 kg

DRUGS (25)
  1. OMEPRAZOLE MAGNESIUM (WALMART) [Suspect]
     Active Substance: OMEPRAZOLE MAGNESIUM
     Route: 048
  2. LEVOTHYROXINE [Concomitant]
     Active Substance: LEVOTHYROXINE
     Indication: THYROID DISORDER
     Route: 048
     Dates: start: 1994
  3. NAPROXEN. [Concomitant]
     Active Substance: NAPROXEN
     Indication: ARTHRITIS
     Route: 048
     Dates: start: 2005
  4. IBUPROFEN. [Concomitant]
     Active Substance: IBUPROFEN
     Indication: HEADACHE
     Dosage: 800 MG INT
     Route: 048
  5. BENADRYL [Concomitant]
     Active Substance: DIPHENHYDRAMINE HYDROCHLORIDE
     Indication: PRURITUS
     Dates: start: 201402
  6. PEPTO-BISMOL [Concomitant]
     Active Substance: BISMUTH SUBSALICYLATE\CALCIUM CARBONATE
     Dates: start: 1984
  7. COPAXONE [Concomitant]
     Active Substance: GLATIRAMER ACETATE
     Indication: MULTIPLE SCLEROSIS
     Route: 050
     Dates: start: 20140406
  8. AFRIN [Concomitant]
     Active Substance: OXYMETAZOLINE
     Indication: MULTIPLE ALLERGIES
     Dosage: 1 DF, INT
     Route: 045
     Dates: start: 1980
  9. NAPROXSYN [Concomitant]
     Indication: ARTHRITIS
     Route: 048
     Dates: start: 2009
  10. COPAXONE [Concomitant]
     Active Substance: GLATIRAMER ACETATE
     Indication: MULTIPLE SCLEROSIS
     Route: 050
     Dates: start: 201402
  11. LEVOTHYROXINE [Concomitant]
     Active Substance: LEVOTHYROXINE
     Indication: HYPOTHYROIDISM
     Route: 048
     Dates: start: 1994
  12. NEXIUM [Suspect]
     Active Substance: ESOMEPRAZOLE MAGNESIUM
     Indication: DYSPEPSIA
     Route: 048
     Dates: start: 201401
  13. SEROQUEL [Concomitant]
     Active Substance: QUETIAPINE FUMARATE
  14. ALPRAZOLAM. [Concomitant]
     Active Substance: ALPRAZOLAM
     Indication: ANXIETY
     Dosage: 1 MG TID AS NEEDED
     Route: 048
     Dates: start: 2013
  15. NEXIUM [Suspect]
     Active Substance: ESOMEPRAZOLE MAGNESIUM
     Indication: GASTROOESOPHAGEAL REFLUX DISEASE
     Route: 048
     Dates: start: 2013, end: 201312
  16. NEXIUM [Suspect]
     Active Substance: ESOMEPRAZOLE MAGNESIUM
     Indication: GASTROOESOPHAGEAL REFLUX DISEASE
     Route: 048
     Dates: start: 201401
  17. LEVOTHYROXINE [Concomitant]
     Active Substance: LEVOTHYROXINE
     Indication: THYROID DISORDER
     Route: 048
     Dates: start: 1995
  18. HYDROCOVAL [Concomitant]
     Indication: STAPHYLOCOCCAL INFECTION
     Dosage: 0.2 PERCENT BID AS NEEDED
     Route: 061
     Dates: start: 2008
  19. AFRIN [Concomitant]
     Active Substance: OXYMETAZOLINE
     Indication: PRURITUS
     Dosage: 1 DF, INT
     Route: 045
     Dates: start: 1980
  20. A-HYDROCORT [Concomitant]
     Active Substance: HYDROCORTISONE SODIUM SUCCINATE
     Indication: STAPHYLOCOCCAL INFECTION
     Dosage: 0.02 % INT
     Route: 023
     Dates: start: 201402
  21. NEXIUM [Suspect]
     Active Substance: ESOMEPRAZOLE MAGNESIUM
     Indication: DYSPEPSIA
     Route: 048
     Dates: start: 2013, end: 201312
  22. LEVOTHYROXINE [Concomitant]
     Active Substance: LEVOTHYROXINE
     Indication: HYPOTHYROIDISM
     Route: 048
     Dates: start: 1995
  23. CITALOPRAM [Concomitant]
     Active Substance: CITALOPRAM HYDROBROMIDE
     Indication: DEPRESSION
     Route: 048
     Dates: start: 2011
  24. ALPRAZOLAM. [Concomitant]
     Active Substance: ALPRAZOLAM
     Indication: PANIC ATTACK
     Dosage: 1 MG TID AS NEEDED
     Route: 048
     Dates: start: 2013
  25. IBUPROFEN. [Concomitant]
     Active Substance: IBUPROFEN
     Indication: HEADACHE
     Route: 048
     Dates: start: 2011

REACTIONS (24)
  - Stress [Unknown]
  - Dry eye [Unknown]
  - Intentional product misuse [Recovered/Resolved]
  - Nasopharyngitis [Unknown]
  - Decreased appetite [Unknown]
  - Pruritus [Unknown]
  - Gastrooesophageal reflux disease [Not Recovered/Not Resolved]
  - Nasal congestion [Unknown]
  - Memory impairment [Unknown]
  - Hypersomnia [Unknown]
  - Food intolerance [Not Recovered/Not Resolved]
  - Headache [Unknown]
  - Drug dose omission [Recovered/Resolved]
  - Multiple sclerosis [Unknown]
  - Panic attack [Unknown]
  - Nasal septum deviation [Unknown]
  - Lacrimation increased [Unknown]
  - Dyspepsia [Recovered/Resolved]
  - Cataract [Recovered/Resolved]
  - Eye pruritus [Unknown]
  - Oesophageal pain [Not Recovered/Not Resolved]
  - Depression [Unknown]
  - Off label use [Unknown]
  - Drug effect incomplete [Unknown]

NARRATIVE: CASE EVENT DATE: 2012
